FAERS Safety Report 17352623 (Version 3)
Quarter: 2022Q3

REPORT INFORMATION
  Report Type: Report from Study
  Country: US (occurrence: None)
  Receive Date: 20200131
  Receipt Date: 20220812
  Transmission Date: 20221027
  Serious: Yes (Disabling, Other)
  Sender: FDA-Public Use
  Company Number: US-MERCK HEALTHCARE KGAA-9142328

PATIENT
  Age: 61 Year
  Sex: Female

DRUGS (1)
  1. REBIF [Suspect]
     Active Substance: INTERFERON BETA-1A
     Indication: Multiple sclerosis
     Route: 058
     Dates: start: 20180417

REACTIONS (9)
  - Cholecystectomy [Unknown]
  - Bedridden [Unknown]
  - Injection site pain [Unknown]
  - Aggression [Recovering/Resolving]
  - Confusional state [Unknown]
  - General physical health deterioration [Unknown]
  - Fear of injection [Unknown]
  - Product storage error [Unknown]
  - Product administration interrupted [Unknown]

NARRATIVE: CASE EVENT DATE: 20191101
